FAERS Safety Report 13602473 (Version 1)
Quarter: 2017Q2

REPORT INFORMATION
  Report Type: Spontaneous
  Country: JP (occurrence: JP)
  Receive Date: 20170601
  Receipt Date: 20170601
  Transmission Date: 20170830
  Serious: Yes (Other)
  Sender: FDA-Public Use
  Company Number: JP-MYLANLABS-2017M1031562

PATIENT

DRUGS (2)
  1. MEROPEN                            /01250501/ [Suspect]
     Active Substance: MEROPENEM
     Indication: MENINGITIS BACTERIAL
     Dosage: 2 G, TID
     Route: 042
     Dates: start: 20150103, end: 20150130
  2. VANCOMYCIN MYLAN [Suspect]
     Active Substance: VANCOMYCIN
     Indication: MENINGITIS BACTERIAL
     Dosage: UNK
     Route: 041
     Dates: start: 20150128

REACTIONS (2)
  - Condition aggravated [Recovered/Resolved]
  - Toxic skin eruption [Recovered/Resolved]

NARRATIVE: CASE EVENT DATE: 20150128
